FAERS Safety Report 14873021 (Version 1)
Quarter: 2018Q2

REPORT INFORMATION
  Report Type: Spontaneous
  Country: US (occurrence: US)
  Receive Date: 20180510
  Receipt Date: 20180510
  Transmission Date: 20180711
  Serious: No
  Sender: FDA-Public Use
  Company Number: US-ASTRAZENECA-2018SE46269

PATIENT
  Sex: Female

DRUGS (3)
  1. IBRANCE [Suspect]
     Active Substance: PALBOCICLIB
     Indication: BREAST CANCER FEMALE
     Dosage: 125 MG, DAILY/21 DAYS ON AND 7 DAYS OFF
     Route: 048
     Dates: start: 20180309
  2. IBRANCE [Suspect]
     Active Substance: PALBOCICLIB
     Indication: BREAST CANCER FEMALE
     Dosage: 125 MG, DAILY/21 DAYS ON AND 7 DAYS OFF
     Route: 048
     Dates: start: 20180122, end: 201802
  3. FASLODEX [Suspect]
     Active Substance: FULVESTRANT
     Indication: BREAST CANCER FEMALE
     Route: 030

REACTIONS (4)
  - Headache [Unknown]
  - Nausea [Unknown]
  - Weight increased [Unknown]
  - Therapy cessation [Unknown]
